FAERS Safety Report 16081550 (Version 1)
Quarter: 2019Q1

REPORT INFORMATION
  Report Type: Spontaneous
  Country: BE (occurrence: BE)
  Receive Date: 20190316
  Receipt Date: 20190316
  Transmission Date: 20190418
  Serious: Yes (Hospitalization)
  Sender: FDA-Public Use
  Company Number: BE-B.I. PHARMACEUTICALS,INC./RIDGEFIELD-2019-BI-010780

PATIENT
  Age: 88 Year
  Sex: Male

DRUGS (1)
  1. PRADAXA [Suspect]
     Active Substance: DABIGATRAN ETEXILATE MESYLATE
     Indication: ATRIAL FIBRILLATION
     Route: 065

REACTIONS (7)
  - General physical health deterioration [Unknown]
  - Thrombocytopenia [Unknown]
  - Anaemia [Unknown]
  - Dyspnoea [Unknown]
  - Fall [Unknown]
  - Extradural haematoma [Unknown]
  - Influenza [Unknown]
